APPROVED DRUG PRODUCT: MOXIFLOXACIN HYDROCHLORIDE
Active Ingredient: MOXIFLOXACIN HYDROCHLORIDE
Strength: EQ 400MG BASE
Dosage Form/Route: TABLET;ORAL
Application: A077437 | Product #001 | TE Code: AB
Applicant: TEVA PHARMACEUTICALS USA
Approved: Feb 18, 2014 | RLD: No | RS: No | Type: RX